FAERS Safety Report 13995828 (Version 5)
Quarter: 2018Q2

REPORT INFORMATION
  Report Type: Spontaneous
  Country: US (occurrence: US)
  Receive Date: 20170921
  Receipt Date: 20180503
  Transmission Date: 20180711
  Serious: No
  Sender: FDA-Public Use
  Company Number: US-ASTRAZENECA-2017SE94196

PATIENT
  Age: 24766 Day
  Sex: Female
  Weight: 63.5 kg

DRUGS (1)
  1. BYDUREON [Suspect]
     Active Substance: EXENATIDE
     Indication: TYPE 2 DIABETES MELLITUS
     Route: 058
     Dates: start: 2017

REACTIONS (9)
  - Injection site pain [Not Recovered/Not Resolved]
  - Device malfunction [Unknown]
  - Injection site mass [Recovering/Resolving]
  - Weight decreased [Unknown]
  - Device leakage [Unknown]
  - Influenza [Unknown]
  - Pharyngitis streptococcal [Unknown]
  - Injection site haemorrhage [Recovered/Resolved]
  - Malaise [Unknown]

NARRATIVE: CASE EVENT DATE: 20170912
